FAERS Safety Report 23325659 (Version 1)
Quarter: 2023Q4

REPORT INFORMATION
  Report Type: Spontaneous
  Country: DE (occurrence: DE)
  Receive Date: 20231221
  Receipt Date: 20231221
  Transmission Date: 20240110
  Serious: Yes (Other)
  Sender: FDA-Public Use
  Company Number: DE-002147023-NVSC2023DE269474

PATIENT
  Age: 43 Year
  Sex: Female

DRUGS (3)
  1. KISQALI [Suspect]
     Active Substance: RIBOCICLIB
     Indication: Human epidermal growth factor receptor negative
     Dosage: 3 X 200 MG, QD (DAILY IN THE EVENING)
     Route: 065
     Dates: start: 2023
  2. LETROZOLE [Suspect]
     Active Substance: LETROZOLE
     Indication: Human epidermal growth factor receptor negative
     Dosage: UNK
     Route: 065
  3. DEXAMETHASONE [Concomitant]
     Active Substance: DEXAMETHASONE
     Indication: Product used for unknown indication
     Dosage: UNK
     Route: 065

REACTIONS (5)
  - Cholestasis [Unknown]
  - Biliary colic [Unknown]
  - Faeces discoloured [Unknown]
  - Gastrointestinal pain [Unknown]
  - Abdominal pain [Unknown]
